FAERS Safety Report 9351460 (Version 1)
Quarter: 2013Q2

REPORT INFORMATION
  Report Type: Spontaneous
  Country: US (occurrence: US)
  Receive Date: 20130617
  Receipt Date: 20130617
  Transmission Date: 20140414
  Serious: No
  Sender: FDA-Public Use
  Company Number: US-UPSHER-SMITH LABORATORIES, INC.-13001933

PATIENT
  Age: 60 Year
  Sex: Female

DRUGS (2)
  1. JANTOVEN [Suspect]
     Indication: THROMBOSIS IN DEVICE
     Dosage: 6 MG, QD
     Route: 048
     Dates: start: 201306, end: 20130604
  2. JANTOVEN [Suspect]
     Indication: THROMBOSIS IN DEVICE
     Dosage: 7.5 MG, QD
     Route: 048
     Dates: start: 201305, end: 201306

REACTIONS (1)
  - International normalised ratio increased [Recovering/Resolving]
